FAERS Safety Report 18333224 (Version 2)
Quarter: 2020Q4

REPORT INFORMATION
  Report Type: Spontaneous
  Country: IT (occurrence: IT)
  Receive Date: 20201001
  Receipt Date: 20201028
  Transmission Date: 20210113
  Serious: Yes (Life-Threatening, Hospitalization)
  Sender: FDA-Public Use
  Company Number: IT-TEVA-2020-IT-1832925

PATIENT
  Age: 73 Year
  Sex: Female

DRUGS (1)
  1. QUETIAPINE. [Suspect]
     Active Substance: QUETIAPINE
     Indication: OVERDOSE
     Dosage: INGESTION OF 120 EXTENDED RELEASE PILLS
     Route: 048

REACTIONS (7)
  - Tachycardia [Recovering/Resolving]
  - Hypotension [Recovering/Resolving]
  - Coma [Recovering/Resolving]
  - Overdose [Recovering/Resolving]
  - Bezoar [Recovered/Resolved]
  - Toxicity to various agents [Recovering/Resolving]
  - Gastric perforation [Recovering/Resolving]
